FAERS Safety Report 8438016-0 (Version None)
Quarter: 2012Q2

REPORT INFORMATION
  Report Type: 
  Country: None (occurrence: None)
  Receive Date: 20120614
  Receipt Date: 20120608
  Transmission Date: 20120825
  Serious: No
  Sender: FDA-Public Use
  Company Number: US-AMGEN-USASP2012030823

PATIENT
  Age: 52 Year
  Sex: Female
  Weight: 70 kg

DRUGS (17)
  1. PROLIA [Suspect]
     Dosage: 60 MG, Q6MO
     Route: 058
     Dates: start: 20120227, end: 20120514
  2. SINGULAIR [Concomitant]
     Dosage: 10 MG, QD
     Route: 048
  3. KARIVA [Concomitant]
     Dosage: UNK UNK, QD
     Route: 048
  4. MIRCETTE [Concomitant]
     Dosage: UNK UNK, QD
     Route: 048
  5. PROAIR HFA [Concomitant]
     Dosage: UNK UNK, Q4H
  6. AZELASTINE HCL [Concomitant]
     Dosage: 137 MUG, BID
     Route: 045
  7. ZOLOFT [Concomitant]
     Dosage: 25 MG, QD
     Route: 048
  8. VICTOZA [Concomitant]
     Dosage: 1.2 MG, QD
     Route: 058
  9. METOPROLOL TARTRATE [Concomitant]
     Dosage: 50 MG, BID
     Route: 048
  10. PROLIA [Suspect]
     Indication: OSTEOPOROSIS POSTMENOPAUSAL
     Dosage: UNK
     Dates: start: 20110201
  11. CALCITRATE [Concomitant]
     Dosage: 600 MG, BID
     Route: 048
  12. XOPENEX [Concomitant]
     Dosage: 1.25 MG, TID
  13. ATROVENT [Concomitant]
     Dosage: 0.06 %, TID
     Route: 045
  14. ALBUTEROL [Concomitant]
     Dosage: 90 MUG, PRN
  15. ALCOHOL SWABS [Concomitant]
     Dosage: UNK UNK, QID
  16. ADVAIR HFA [Concomitant]
     Dosage: UNK UNK, PRN
  17. VITAMIN D [Concomitant]
     Dosage: 3000 IU, QD
     Route: 048

REACTIONS (1)
  - BLOOD CALCIUM DECREASED [None]
